FAERS Safety Report 5106063-2 (Version None)
Quarter: 2006Q3

REPORT INFORMATION
  Report Type: 
  Country: None (occurrence: None)
  Receive Date: 20060912
  Receipt Date: 20060830
  Transmission Date: 20061208
  Serious: Yes (Other)
  Sender: FDA-Public Use
  Company Number: 2006107334

PATIENT
  Age: 44 Year
  Sex: Female
  Weight: 113.3993 kg

DRUGS (2)
  1. CELEBREX [Suspect]
     Indication: PAIN
     Dates: start: 20010101, end: 20010101
  2. BEXTRA [Suspect]
     Indication: PAIN

REACTIONS (2)
  - CARDIAC DISORDER [None]
  - STOMACH DISCOMFORT [None]
